FAERS Safety Report 9487216 (Version 1)
Quarter: 2013Q3

REPORT INFORMATION
  Report Type: Spontaneous
  Country: US (occurrence: US)
  Receive Date: 20130829
  Receipt Date: 20130829
  Transmission Date: 20140515
  Serious: Yes (Other)
  Sender: FDA-Public Use
  Company Number: US-TEVA-428834USA

PATIENT
  Sex: Male

DRUGS (3)
  1. AZILECT [Suspect]
  2. EFFIENT [Concomitant]
     Indication: ANTICOAGULANT THERAPY
  3. ASPIRIN [Concomitant]
     Indication: ANTICOAGULANT THERAPY
     Dosage: 325 MILLIGRAM DAILY;
     Route: 048

REACTIONS (1)
  - Coronary arterial stent insertion [Recovered/Resolved]
